FAERS Safety Report 4496503-4 (Version None)
Quarter: 2004Q3

REPORT INFORMATION
  Report Type: 
  Country: None (occurrence: None)
  Receive Date: 20040923
  Receipt Date: 20040310
  Transmission Date: 20050211
  Serious: Yes (Hospitalization, Other)
  Sender: FDA-Public Use
  Company Number: 2004016720

PATIENT
  Age: 57 Year
  Sex: Female
  Weight: 88.4514 kg

DRUGS (14)
  1. ZYRTEC [Suspect]
     Indication: ASTHMA
     Dosage: 10 MG (DAILY), ORAL
     Route: 048
  2. CANDESARTAN CILEXETIL (CANDESARTAN CILEXETIL) [Suspect]
     Indication: HYPERTENSION
     Dates: end: 20040101
  3. WELCHOL [Concomitant]
  4. ATORVASTATIN (ATORVASTATIN) [Concomitant]
  5. GABAPENTIN [Concomitant]
  6. VALPROATE SODIUM [Concomitant]
  7. ALL OTHER THERAPEUTIC PRODUCTS (ALL OTHER THERAPEUTIC PRODUCTS) [Concomitant]
  8. CLONAZEPAM [Concomitant]
  9. FUROSEMIDE [Concomitant]
  10. ESOMEPRAZOLE (ESOMEPRAZOLE) [Concomitant]
  11. TRAZODONE HCL [Concomitant]
  12. ACETASOL (ACETIC ACID, BENZETHONIUM CHLORIDE, SODIUM ACETATE, PROPYLEN [Concomitant]
  13. BUDESONIDE (BUDESONIDE) [Concomitant]
  14. MIDRID (PARACETAMOL, DICHLORALPHENAZONE, ISOMETHEPTENE) [Concomitant]

REACTIONS (11)
  - ASTHMA [None]
  - BACK PAIN [None]
  - BLOOD GLUCOSE INCREASED [None]
  - BLOOD PRESSURE DECREASED [None]
  - BRONCHITIS [None]
  - FULL BLOOD COUNT INCREASED [None]
  - HEADACHE [None]
  - MUSCULOSKELETAL DISCOMFORT [None]
  - PAIN [None]
  - PNEUMONIA [None]
  - PYREXIA [None]
